FAERS Safety Report 20083827 (Version 2)
Quarter: 2021Q4

REPORT INFORMATION
  Report Type: Spontaneous
  Country: PT (occurrence: None)
  Receive Date: 20211118
  Receipt Date: 20211123
  Transmission Date: 20220303
  Serious: Yes (Hospitalization, Other)
  Sender: FDA-Public Use
  Company Number: PT-VistaPharm, Inc.-VER202111-002124

PATIENT
  Age: 65 Year
  Sex: Male

DRUGS (4)
  1. ACETAMINOPHEN\HYDROCODONE [Suspect]
     Active Substance: ACETAMINOPHEN\HYDROCODONE
     Indication: Suicide attempt
     Dosage: 8 G
     Route: 065
  2. CUPRIC SULFATE [Suspect]
     Active Substance: CUPRIC SULFATE
     Indication: Suicide attempt
     Dosage: UNKNOWN
     Route: 065
  3. IBUPROFEN [Suspect]
     Active Substance: IBUPROFEN
     Indication: Suicide attempt
     Dosage: 4 G
     Route: 065
  4. SODIUM HYPOCHLORITE [Suspect]
     Active Substance: SODIUM HYPOCHLORITE
     Indication: Suicide attempt
     Dosage: 125 ML
     Route: 065

REACTIONS (5)
  - Renal injury [Recovered/Resolved]
  - Oesophagitis chemical [Recovered/Resolved]
  - Hepatitis toxic [Recovered/Resolved]
  - Toxicity to various agents [Recovered/Resolved]
  - Suicide attempt [Unknown]
